FAERS Safety Report 4608041-6 (Version None)
Quarter: 2005Q2

REPORT INFORMATION
  Report Type: 
  Country: None (occurrence: None)
  Receive Date: 20050303
  Receipt Date: 20041116
  Transmission Date: 20051028
  Serious: No
  Sender: FDA-Public Use
  Company Number: 210514

PATIENT
  Age: 60 Year
  Sex: Male
  Weight: 89.3 kg

DRUGS (1)
  1. XOLAIR [Suspect]
     Dosage: 275 MG/M2, Q2W, SUBCUTANEOUS
     Route: 058
     Dates: start: 20041012

REACTIONS (1)
  - WHEEZING [None]
